FAERS Safety Report 5425462-2 (Version None)
Quarter: 2007Q3

REPORT INFORMATION
  Report Type: 
  Country: None (occurrence: None)
  Receive Date: 20070731
  Receipt Date: 20070405
  Transmission Date: 20080115
  Serious: No
  Sender: FDA-Public Use
  Company Number: US200704001663

PATIENT
  Age: 80 Year
  Sex: Female

DRUGS (3)
  1. BYETTA [Suspect]
     Indication: TYPE 2 DIABETES MELLITUS
     Dosage: 10 UG, 2/D, SUBCUTANEOUS
     Route: 058
     Dates: start: 20060101
  2. EXENATIDE 10 MCG, PEN, DISPOSABLE DEVICE (EXENATIDE PEN (10 MCG)) PEN, [Concomitant]
  3. NOVOLIN N [Concomitant]

REACTIONS (3)
  - BLOOD POTASSIUM [None]
  - FEELING ABNORMAL [None]
  - VISUAL ACUITY REDUCED [None]
